FAERS Safety Report 7166514-9 (Version None)
Quarter: 2010Q4

REPORT INFORMATION
  Report Type: 
  Country: None (occurrence: None)
  Receive Date: 20101216
  Receipt Date: 20101206
  Transmission Date: 20110411
  Serious: Yes (Hospitalization, Other)
  Sender: FDA-Public Use
  Company Number: JP-JNJFOC-20101000492

PATIENT
  Sex: Female
  Weight: 61 kg

DRUGS (25)
  1. DOXORUBICIN HCL [Suspect]
     Indication: OVARIAN CANCER RECURRENT
     Dosage: CYCLE 2
     Route: 042
  2. DOXORUBICIN HCL [Suspect]
     Dosage: CYCLE 5
     Route: 042
  3. DOXORUBICIN HCL [Suspect]
     Dosage: CYCLE 6
     Route: 042
  4. DOXORUBICIN HCL [Suspect]
     Dosage: CYCLE 3
     Route: 042
  5. DOXORUBICIN HCL [Suspect]
     Dosage: CYCLE 4
     Route: 042
  6. DOXORUBICIN HCL [Suspect]
     Dosage: CYCLE 1
     Route: 042
  7. CEFAMEZIN ALPHA [Concomitant]
     Indication: PRODUCT USED FOR UNKNOWN INDICATION
     Route: 042
  8. JUZEN-TAIHO-TO [Concomitant]
     Indication: OVARIAN CANCER RECURRENT
     Route: 048
  9. LEUCON [Concomitant]
     Indication: OVARIAN CANCER RECURRENT
     Route: 048
  10. FERROUS CITRATE [Concomitant]
     Indication: OVARIAN CANCER RECURRENT
     Route: 048
  11. PARIET [Concomitant]
     Indication: GASTRIC ULCER
     Route: 048
  12. PRIMPERAN TAB [Concomitant]
     Indication: OVARIAN CANCER RECURRENT
     Route: 048
  13. DECADRON [Concomitant]
     Indication: PROPHYLAXIS
     Route: 048
  14. DECADRON [Concomitant]
     Route: 048
  15. PYDOXAL [Concomitant]
     Indication: PROPHYLAXIS
     Route: 048
  16. HIRUDOID CREAM [Concomitant]
     Indication: PROPHYLAXIS
     Route: 061
  17. KENALOG [Concomitant]
     Indication: STOMATITIS
     Route: 049
  18. ZYLORIC [Concomitant]
     Indication: STOMATITIS
     Route: 048
  19. LOXONIN [Concomitant]
     Indication: OVARIAN CANCER RECURRENT
     Route: 048
  20. NEUTROGIN [Concomitant]
     Indication: PRODUCT USED FOR UNKNOWN INDICATION
     Route: 042
  21. VOLTAREN [Concomitant]
     Indication: PRODUCT USED FOR UNKNOWN INDICATION
     Route: 054
  22. PRIMPERAN TAB [Concomitant]
     Indication: PRODUCT USED FOR UNKNOWN INDICATION
     Route: 042
  23. AZUNOL [Concomitant]
     Indication: PRODUCT USED FOR UNKNOWN INDICATION
     Route: 065
  24. XYLOCAINE [Concomitant]
     Indication: PRODUCT USED FOR UNKNOWN INDICATION
     Route: 065
  25. LOPEMIN [Concomitant]
     Indication: PRODUCT USED FOR UNKNOWN INDICATION
     Route: 048

REACTIONS (6)
  - ANAEMIA [None]
  - CHILLS [None]
  - INFUSION RELATED REACTION [None]
  - NAUSEA [None]
  - PYREXIA [None]
  - URTICARIA [None]
